FAERS Safety Report 24412105 (Version 1)
Quarter: 2024Q4

REPORT INFORMATION
  Report Type: Spontaneous
  Country: US (occurrence: US)
  Receive Date: 20241008
  Receipt Date: 20241008
  Transmission Date: 20250114
  Serious: Yes (Hospitalization)
  Sender: AMGEN
  Company Number: US-AMGEN-USASP2024193667

PATIENT
  Age: 42 Year
  Sex: Female

DRUGS (2)
  1. PREDNISONE [Suspect]
     Active Substance: PREDNISONE
     Indication: Hepatic cirrhosis
     Dosage: 40 MILLIGRAM FOR 1 WEEK
     Route: 065
  2. PREDNISONE [Suspect]
     Active Substance: PREDNISONE
     Indication: Ascites
     Dosage: UNK (TAPER)
     Route: 065

REACTIONS (7)
  - Hepatic encephalopathy [Unknown]
  - Abdominal pain [Unknown]
  - Hyponatraemia [Unknown]
  - Leukocytosis [Recovered/Resolved]
  - Hypophagia [Unknown]
  - Pulmonary nocardiosis [Unknown]
  - Off label use [Unknown]
